FAERS Safety Report 4444886-3 (Version None)
Quarter: 2004Q3

REPORT INFORMATION
  Report Type: 
  Country: None (occurrence: None)
  Receive Date: 20040909
  Receipt Date: 20040409
  Transmission Date: 20050211
  Serious: Yes (Life-Threatening)
  Sender: FDA-Public Use
  Company Number: JP-GLAXOSMITHKLINE-B0329668A

PATIENT
  Age: 86 Year
  Sex: Female
  Weight: 47 kg

DRUGS (5)
  1. VALTREX [Suspect]
     Indication: HERPES ZOSTER
     Dosage: 1000MG THREE TIMES PER DAY
     Route: 048
     Dates: start: 20040402, end: 20040404
  2. ACYCLOVIR [Suspect]
     Indication: HERPES ZOSTER
     Dosage: 250MG PER DAY
     Route: 042
     Dates: start: 20040402, end: 20040403
  3. AMLODIN [Concomitant]
     Dosage: 5MG PER DAY
     Route: 048
  4. SIMVASTATIN [Concomitant]
     Dosage: 5MG PER DAY
     Route: 048
  5. HAEMODIALYSIS [Concomitant]

REACTIONS (12)
  - ABASIA [None]
  - ANOREXIA [None]
  - ASTHENIA [None]
  - BLOOD CREATININE INCREASED [None]
  - BLOOD POTASSIUM INCREASED [None]
  - BLOOD UREA INCREASED [None]
  - DECREASED APPETITE [None]
  - HAEMODIALYSIS [None]
  - MALAISE [None]
  - NERVOUS SYSTEM DISORDER [None]
  - RENAL FAILURE ACUTE [None]
  - SPEECH DISORDER [None]
